FAERS Safety Report 20090370 (Version 3)
Quarter: 2022Q1

REPORT INFORMATION
  Report Type: Report from Study
  Country: RS (occurrence: RS)
  Receive Date: 20211119
  Receipt Date: 20220106
  Transmission Date: 20220423
  Serious: Yes (Hospitalization, Other)
  Sender: FDA-Public Use
  Company Number: RS-GW PHARMA-202111RSGW05465

PATIENT

DRUGS (10)
  1. EPIDIOLEX [Suspect]
     Active Substance: CANNABIDIOL
     Indication: Schizophrenia
     Dosage: 7.3 MG/KG, 500 MILLIGRAM, BID
     Route: 048
     Dates: start: 20211028, end: 20211105
  2. EPIDIOLEX [Suspect]
     Active Substance: CANNABIDIOL
     Dosage: 3.6 MG/KG, 500 MILLIGRAM MORNING DOSE
     Route: 048
     Dates: start: 20211106, end: 20211106
  3. EPIDIOLEX [Suspect]
     Active Substance: CANNABIDIOL
     Dosage: 3.6 MG/KG, 500 MILLIGRAM, QD MORNING DOSE
     Route: 048
     Dates: start: 20211107, end: 20211107
  4. PALIPERIDONE [Concomitant]
     Active Substance: PALIPERIDONE
     Indication: Schizophrenia
     Dosage: 150 MILLIGRAM ONCE A MONTH
     Route: 030
     Dates: start: 20190328
  5. PALIPERIDONE [Concomitant]
     Active Substance: PALIPERIDONE
     Dosage: 100MG, OTHER
     Route: 030
     Dates: start: 20200115
  6. GLUCOPHAGE XR [Concomitant]
     Active Substance: METFORMIN HYDROCHLORIDE
     Indication: Hypothyroidism
     Dosage: 1000 MILLIGRAM, SINGLE
     Route: 048
     Dates: start: 20210210
  7. GLUCOPHAGE XR [Concomitant]
     Active Substance: METFORMIN HYDROCHLORIDE
     Indication: Obesity
  8. SELENIUM [Concomitant]
     Active Substance: SELENIUM
     Indication: Hypothyroidism
     Dosage: 83 MICROGRAM, SINGLE
     Route: 048
     Dates: start: 20210210
  9. MYO INOSITOL [Concomitant]
     Indication: Hypothyroidism
     Dosage: 600 MILLIGRAM, SINGLE
     Route: 048
     Dates: start: 20210210
  10. PFIZER-BIONTECH COVID-19 VACCINE [Concomitant]
     Active Substance: TOZINAMERAN
     Indication: COVID-19 immunisation
     Dosage: 1 MILLILITER, SINGLE
     Route: 058
     Dates: start: 20211028, end: 20211028

REACTIONS (1)
  - Urticaria [Recovered/Resolved]

NARRATIVE: CASE EVENT DATE: 20211107
